FAERS Safety Report 4829321-5 (Version None)
Quarter: 2005Q4

REPORT INFORMATION
  Report Type: 
  Country: None (occurrence: None)
  Receive Date: 20051115
  Receipt Date: 20051115
  Transmission Date: 20060501
  Serious: No
  Sender: FDA-Public Use
  Company Number: None

PATIENT
  Sex: Male
  Weight: 108.8633 kg

DRUGS (3)
  1. METHADONE   5MG [Suspect]
     Indication: PAIN
     Dosage: 2.5MG  -1/2 TABLET-  EVERY 12 HOURS  PO
     Route: 048
  2. CYCLOBENZAPRINE HCL [Concomitant]
  3. FLUOXETINE [Concomitant]

REACTIONS (3)
  - ANXIETY [None]
  - FLUSHING [None]
  - PRURITUS [None]
